FAERS Safety Report 5002404-5 (Version None)
Quarter: 2006Q2

REPORT INFORMATION
  Report Type: 
  Country: None (occurrence: None)
  Receive Date: 20060510
  Receipt Date: 20060427
  Transmission Date: 20061013
  Serious: Yes (Hospitalization)
  Sender: FDA-Public Use
  Company Number: 2006-DE-02161GD

PATIENT
  Age: 33 Year
  Sex: Female

DRUGS (5)
  1. PREDNISONE TAB [Suspect]
     Indication: RASH PRURITIC
     Dosage: TAPERED DOSE
  2. PREDNISONE TAB [Suspect]
     Indication: URTICARIA
     Dosage: TAPERED DOSE
  3. BUPIVACAINE [Concomitant]
     Indication: PREGNANCY
  4. FENTANYL [Concomitant]
  5. EPINEPHRINE [Concomitant]

REACTIONS (15)
  - BACK PAIN [None]
  - BACTERIAL INFECTION [None]
  - BLOOD PRESSURE INCREASED [None]
  - CATHETER SITE RELATED REACTION [None]
  - CEREBROSPINAL FLUID RETENTION [None]
  - DRUG EXPOSURE DURING PREGNANCY [None]
  - EXTRADURAL ABSCESS [None]
  - NODULE [None]
  - PLATELET COUNT INCREASED [None]
  - PREMATURE BABY [None]
  - RED BLOOD CELL SEDIMENTATION RATE INCREASED [None]
  - SPINAL CORD COMPRESSION [None]
  - SPINAL DISORDER [None]
  - STAPHYLOCOCCAL INFECTION [None]
  - WHITE BLOOD CELL COUNT INCREASED [None]
